FAERS Safety Report 9516333 (Version 1)
Quarter: 2013Q3

REPORT INFORMATION
  Report Type: Spontaneous
  Country: US (occurrence: US)
  Receive Date: 20130911
  Receipt Date: 20130911
  Transmission Date: 20140515
  Serious: Yes (Hospitalization, Other)
  Sender: FDA-Public Use
  Company Number: US-SANOFI-AVENTIS-2013SA089387

PATIENT
  Sex: Male

DRUGS (8)
  1. PLAVIX [Suspect]
     Indication: THROMBOSIS
     Route: 065
  2. COUMADIN [Suspect]
     Route: 065
  3. GLIPIZIDE [Concomitant]
  4. PRAVASTATIN [Concomitant]
  5. ALTACE [Concomitant]
  6. ASPIRIN [Concomitant]
  7. FOLIC ACID [Concomitant]
  8. DILTIAZEM HYDROCHLORIDE [Concomitant]

REACTIONS (8)
  - Atrial fibrillation [Unknown]
  - Thrombosis [Unknown]
  - Coagulation factor V level abnormal [Unknown]
  - Bladder neoplasm [Unknown]
  - Gastrooesophageal reflux disease [Unknown]
  - Hypersensitivity [Unknown]
  - Sinus disorder [Unknown]
  - Adverse event [Unknown]
